FAERS Safety Report 19240689 (Version 1)
Quarter: 2021Q2

REPORT INFORMATION
  Report Type: Spontaneous
  Country: US (occurrence: US)
  Receive Date: 20210511
  Receipt Date: 20210511
  Transmission Date: 20210717
  Serious: Yes (Hospitalization)
  Sender: FDA-Public Use
  Company Number: US-ASTRAZENECA-2021A394563

PATIENT
  Age: 22372 Day
  Sex: Female
  Weight: 77.1 kg

DRUGS (2)
  1. IMFINZI [Suspect]
     Active Substance: DURVALUMAB
     Indication: SQUAMOUS CELL CARCINOMA OF LUNG
     Dosage: EVERY TWO WEEKS
     Route: 042
     Dates: start: 20210305
  2. CEFUROXIME. [Concomitant]
     Active Substance: CEFUROXIME
     Indication: CELLULITIS
     Route: 048
     Dates: start: 202104

REACTIONS (10)
  - Insomnia [Recovering/Resolving]
  - Fatigue [Recovering/Resolving]
  - Product dose omission issue [Not Recovered/Not Resolved]
  - Cellulitis [Recovering/Resolving]
  - Hypokinesia [Recovering/Resolving]
  - Arthralgia [Recovering/Resolving]
  - Myalgia [Recovering/Resolving]
  - Gait disturbance [Recovering/Resolving]
  - Peripheral swelling [Recovering/Resolving]
  - Pain in extremity [Recovering/Resolving]

NARRATIVE: CASE EVENT DATE: 20210416
